FAERS Safety Report 14232827 (Version 1)
Quarter: 2017Q4

REPORT INFORMATION
  Report Type: Other
  Country: FR (occurrence: FR)
  Receive Date: 20171129
  Receipt Date: 20171129
  Transmission Date: 20180321
  Serious: Yes (Death)
  Sender: FDA-Public Use
  Company Number: FR-VALIDUS PHARMACEUTICALS LLC-FR-2017VAL001589

PATIENT
  Age: 68 Year
  Sex: Male

DRUGS (9)
  1. ZYVOXID [Suspect]
     Active Substance: LINEZOLID
     Indication: OSTEITIS
     Dosage: 10800 MG, QD
     Route: 042
     Dates: start: 20171025, end: 20171103
  2. NOREPINEPHRINE. [Suspect]
     Active Substance: NOREPINEPHRINE
     Indication: CIRCULATORY COLLAPSE
     Dosage: 41.8 MG, QD
     Route: 042
     Dates: start: 20171025, end: 20171103
  3. FUROSEMIDE. [Suspect]
     Active Substance: FUROSEMIDE
     Indication: SODIUM RETENTION
     Dosage: 500 MG, QD
     Route: 042
     Dates: start: 20171025, end: 20171102
  4. FLAGYL [Suspect]
     Active Substance: METRONIDAZOLE\METRONIDAZOLE HYDROCHLORIDE
     Indication: OSTEITIS
     Dosage: 13500 MG, QD
     Route: 042
     Dates: start: 20171025, end: 20171103
  5. PERFALGAN [Suspect]
     Active Substance: ACETAMINOPHEN
     Indication: ANALGESIC THERAPY
     Dosage: 15 G, QD
     Route: 042
     Dates: start: 20171026, end: 20171103
  6. HEPARIN SODIUM. [Suspect]
     Active Substance: HEPARIN SODIUM
     Indication: ARRHYTHMIA
  7. INIPOMP [Suspect]
     Active Substance: PANTOPRAZOLE SODIUM
     Indication: PROPHYLAXIS
     Dosage: 360 MG, QD
     Route: 042
     Dates: start: 20171026, end: 20171102
  8. CEFTRIAXONE SODIUM. [Suspect]
     Active Substance: CEFTRIAXONE SODIUM
     Indication: OSTEITIS
     Dosage: 6 G, QD
     Route: 042
     Dates: start: 20171025, end: 20171103
  9. HEPARIN SODIUM. [Suspect]
     Active Substance: HEPARIN SODIUM
     Indication: ATRIAL FIBRILLATION
     Dosage: 2.6 IU, QD, PANPHARMA
     Route: 042
     Dates: start: 20171026, end: 20171102

REACTIONS (2)
  - Shock haemorrhagic [Fatal]
  - Retroperitoneal haematoma [Fatal]

NARRATIVE: CASE EVENT DATE: 201711
